FAERS Safety Report 24144087 (Version 1)
Quarter: 2024Q3

REPORT INFORMATION
  Report Type: Spontaneous
  Country: CN (occurrence: CN)
  Receive Date: 20240727
  Receipt Date: 20240727
  Transmission Date: 20241016
  Serious: Yes (Hospitalization)
  Sender: IPSEN
  Company Number: None

PATIENT
  Age: 73 Year
  Sex: Male
  Weight: 55 kg

DRUGS (6)
  1. IRINOTECAN HYDROCHLORIDE [Suspect]
     Active Substance: IRINOTECAN HYDROCHLORIDE
     Indication: Small cell lung cancer metastatic
     Dosage: 37.66 MG, QD
     Route: 042
     Dates: start: 20240611, end: 20240619
  2. CARBOPLATIN [Suspect]
     Active Substance: CARBOPLATIN
     Indication: Small cell lung cancer metastatic
     Dosage: 400 MG, QD
     Route: 042
     Dates: start: 20240611, end: 20240611
  3. SERPLULIMAB [Suspect]
     Active Substance: SERPLULIMAB
     Indication: Small cell lung cancer metastatic
     Dosage: 300 MG, QD
     Route: 042
     Dates: start: 20240601, end: 20240612
  4. SODIUM CHLORIDE [Concomitant]
     Active Substance: SODIUM CHLORIDE
     Indication: Medication dilution
     Dosage: 100 ML, QD
     Route: 042
     Dates: start: 20240601, end: 20240601
  5. SODIUM CHLORIDE [Concomitant]
     Active Substance: SODIUM CHLORIDE
     Dosage: 250 ML, QD
     Route: 042
     Dates: start: 20240611, end: 20240619
  6. DEXTROSE [Concomitant]
     Active Substance: DEXTROSE\DEXTROSE MONOHYDRATE
     Indication: Medication dilution
     Dosage: 500 ML, QD
     Route: 042
     Dates: start: 20240611, end: 20240611

REACTIONS (3)
  - Myelosuppression [Recovering/Resolving]
  - Platelet count decreased [Recovered/Resolved]
  - Anaemia [Recovering/Resolving]

NARRATIVE: CASE EVENT DATE: 20240708
